FAERS Safety Report 7002491-9 (Version None)
Quarter: 2010Q3

REPORT INFORMATION
  Report Type: 
  Country: None (occurrence: None)
  Receive Date: 20100920
  Receipt Date: 20090730
  Transmission Date: 20110219
  Serious: Yes (Hospitalization)
  Sender: FDA-Public Use
  Company Number: US-ASTRAZENECA-2009UW12923

PATIENT
  Age: 32 Year
  Sex: Female
  Weight: 83.5 kg

DRUGS (3)
  1. SEROQUEL [Suspect]
     Indication: INSOMNIA
     Dosage: 100 MG TO 300 MG
     Route: 048
     Dates: start: 20040101, end: 20060101
  2. SEROQUEL [Suspect]
     Indication: DEPRESSION
     Dosage: 100 MG TO 300 MG
     Route: 048
     Dates: start: 20040101, end: 20060101
  3. ZYPREXA [Concomitant]
     Dates: start: 20030101, end: 20040101

REACTIONS (9)
  - ABSCESS [None]
  - BLOOD CHOLESTEROL INCREASED [None]
  - BLOOD TRIGLYCERIDES INCREASED [None]
  - DIABETIC KETOACIDOSIS [None]
  - GLYCOSURIA [None]
  - HYPERGLYCAEMIA [None]
  - HYPERTENSION [None]
  - RENAL DISORDER [None]
  - TYPE 2 DIABETES MELLITUS [None]
